FAERS Safety Report 5513510-0 (Version None)
Quarter: 2007Q4

REPORT INFORMATION
  Report Type: 
  Country: None (occurrence: None)
  Receive Date: 20071108
  Receipt Date: 20071025
  Transmission Date: 20080405
  Serious: Yes (Hospitalization)
  Sender: FDA-Public Use
  Company Number: 2007AL004445

PATIENT
  Age: 40 Year
  Sex: Male

DRUGS (1)
  1. DICLOFENAC SODIUM [Suspect]
     Indication: PERINEAL PAIN
     Dosage: 50 MG; TID; PO
     Route: 048

REACTIONS (8)
  - ABDOMINAL ADHESIONS [None]
  - GASTROINTESTINAL MUCOSAL DISORDER [None]
  - INTESTINAL DIAPHRAGM DISEASE [None]
  - INTESTINAL OBSTRUCTION [None]
  - INTESTINAL POLYP [None]
  - INTESTINAL ULCER PERFORATION [None]
  - MASS [None]
  - POLYP [None]
